FAERS Safety Report 9001065 (Version 1)
Quarter: 2013Q1

REPORT INFORMATION
  Report Type: Spontaneous
  Country: IT (occurrence: IT)
  Receive Date: 20130107
  Receipt Date: 20130107
  Transmission Date: 20140127
  Serious: Yes (Other)
  Sender: FDA-Public Use
  Company Number: IT-JNJFOC-20121213845

PATIENT
  Age: 25 Year
  Sex: Female

DRUGS (1)
  1. INVEGA [Suspect]
     Indication: PRODUCT USED FOR UNKNOWN INDICATION
     Dosage: 28 TABLETS
     Route: 048
     Dates: start: 20121226, end: 20121226

REACTIONS (3)
  - Self injurious behaviour [Unknown]
  - Intentional overdose [Unknown]
  - Tachycardia [Unknown]
